FAERS Safety Report 12200404 (Version 2)
Quarter: 2016Q1

REPORT INFORMATION
  Report Type: Spontaneous
  Country: US (occurrence: US)
  Receive Date: 20160322
  Receipt Date: 20160329
  Transmission Date: 20160526
  Serious: Yes (Death)
  Sender: FDA-Public Use
  Company Number: US-BAYER-2016-050818

PATIENT
  Age: 51 Year
  Sex: Female

DRUGS (1)
  1. MIRALAX [Suspect]
     Active Substance: POLYETHYLENE GLYCOL 3350
     Indication: COLON CANCER
     Dosage: 1 DF, QD
     Route: 048
     Dates: start: 2010, end: 2011

REACTIONS (2)
  - Colon cancer [Fatal]
  - Product use issue [None]

NARRATIVE: CASE EVENT DATE: 2010
